FAERS Safety Report 8411108-8 (Version None)
Quarter: 2012Q2

REPORT INFORMATION
  Report Type: 
  Country: None (occurrence: None)
  Receive Date: 20120605
  Receipt Date: 20120528
  Transmission Date: 20120825
  Serious: Yes (Other)
  Sender: FDA-Public Use
  Company Number: JP-SANOFI-AVENTIS-2012SA038379

PATIENT
  Age: 70 Year
  Sex: Male

DRUGS (2)
  1. RASBURICASE [Suspect]
     Route: 042
  2. ANTINEOPLASTIC AGENTS [Concomitant]

REACTIONS (2)
  - BONE MARROW FAILURE [None]
  - HEPATIC FUNCTION ABNORMAL [None]
